FAERS Safety Report 9509996 (Version 2)
Quarter: 2013Q3

REPORT INFORMATION
  Report Type: Spontaneous
  Country: ES (occurrence: ES)
  Receive Date: 20130909
  Receipt Date: 20130917
  Transmission Date: 20140515
  Serious: Yes (Other)
  Sender: FDA-Public Use
  Company Number: ES-GILEAD-2013-0082878

PATIENT
  Age: 63 Year
  Sex: Female

DRUGS (4)
  1. RANOLAZINE [Suspect]
     Indication: PRODUCT USED FOR UNKNOWN INDICATION
     Dosage: 375 MG, BID
     Route: 048
     Dates: start: 201109, end: 201112
  2. BISOPROLOL [Concomitant]
     Dosage: 5 MG, UNK
  3. AMLODIPINE [Concomitant]
     Dosage: 10 MG, UNK
  4. ATORVASTATIN [Concomitant]
     Dosage: 40 MG, UNK

REACTIONS (3)
  - Hepatotoxicity [Recovered/Resolved]
  - Insomnia [Recovered/Resolved]
  - Malaise [Recovered/Resolved]
